FAERS Safety Report 4989573-8 (Version None)
Quarter: 2006Q2

REPORT INFORMATION
  Report Type: 
  Country: None (occurrence: None)
  Receive Date: 20060426
  Receipt Date: 20060410
  Transmission Date: 20061013
  Serious: Yes (Other)
  Sender: FDA-Public Use
  Company Number: 2005BI020058

PATIENT
  Age: 38 Year
  Sex: Female

DRUGS (2)
  1. AVONEX [Suspect]
     Indication: MULTIPLE SCLEROSIS
     Dosage: 30 UG;QW;IM
     Route: 030
     Dates: start: 20021017, end: 20050801
  2. XANAX [Concomitant]

REACTIONS (5)
  - DRUG TOXICITY [None]
  - IMMUNE SYSTEM DISORDER [None]
  - NEUROFIBROMA [None]
  - SCAR [None]
  - TOXIC EPIDERMAL NECROLYSIS [None]
